FAERS Safety Report 4686333-2 (Version None)
Quarter: 2005Q2

REPORT INFORMATION
  Report Type: 
  Country: None (occurrence: None)
  Receive Date: 20050606
  Receipt Date: 20050531
  Transmission Date: 20051028
  Serious: Yes (Hospitalization, Other)
  Sender: FDA-Public Use
  Company Number: 2005081532

PATIENT
  Age: 35 Year
  Sex: Female

DRUGS (4)
  1. LIPITOR [Suspect]
     Indication: BLOOD CHOLESTEROL INCREASED
     Dosage: 20 MG (20 MG, 1 IN 1 D), ORAL
     Route: 048
  2. OSCAL 500-D (CALCIUM COLECALCIFEROL) [Concomitant]
  3. PERIOSTAT [Concomitant]
  4. PREVACID [Concomitant]

REACTIONS (2)
  - PANCREATITIS ACUTE [None]
  - VOMITING [None]
